FAERS Safety Report 11329788 (Version 11)
Quarter: 2016Q1

REPORT INFORMATION
  Report Type: Report from Study
  Country: CA (occurrence: CA)
  Receive Date: 20150803
  Receipt Date: 20160225
  Transmission Date: 20160525
  Serious: Yes (Death, Hospitalization, Other)
  Sender: FDA-Public Use
  Company Number: PHHY2015CA078928

PATIENT
  Age: 80 Year
  Sex: Male

DRUGS (2)
  1. SANDOSTATIN LAR DEPOT [Suspect]
     Active Substance: OCTREOTIDE ACETATE
     Indication: HEPATORENAL SYNDROME
     Dosage: 10 MG, QMO
     Route: 030
     Dates: start: 20150629
  2. SANDOSTATIN [Suspect]
     Active Substance: OCTREOTIDE ACETATE
     Indication: HEPATORENAL SYNDROME
     Dosage: 100 UG, TID (TO END AT THE START OF LAR)
     Route: 058
     Dates: start: 20150611, end: 201506

REACTIONS (18)
  - Ascites [Unknown]
  - Oxygen saturation decreased [Unknown]
  - Dermal cyst [Unknown]
  - Blood potassium increased [Unknown]
  - Incarcerated inguinal hernia [Unknown]
  - Testicular necrosis [Unknown]
  - Death [Fatal]
  - Pleural effusion [Not Recovered/Not Resolved]
  - Dyspnoea [Unknown]
  - Lumbar vertebral fracture [Unknown]
  - Pain [Unknown]
  - Respiratory rate increased [Unknown]
  - Ear pain [Unknown]
  - Product use issue [Unknown]
  - Osteoporosis [Unknown]
  - Blood pressure decreased [Unknown]
  - Gastrointestinal disorder [Unknown]
  - Abdominal pain [Unknown]

NARRATIVE: CASE EVENT DATE: 2015
